FAERS Safety Report 6832674-X (Version None)
Quarter: 2010Q3

REPORT INFORMATION
  Report Type: 
  Country: None (occurrence: None)
  Receive Date: 20100712
  Receipt Date: 20070919
  Transmission Date: 20110219
  Serious: No
  Sender: FDA-Public Use
  Company Number: US-PFIZER INC-2007021041

PATIENT
  Sex: Male
  Weight: 127.01 kg

DRUGS (11)
  1. CHANTIX [Suspect]
     Indication: SMOKING CESSATION THERAPY
     Dates: start: 20070302, end: 20070301
  2. INSULIN [Concomitant]
  3. METOPROLOL [Concomitant]
  4. ACETYLSALICYLIC ACID [Concomitant]
  5. LANTUS [Concomitant]
  6. GLIPIZIDE [Concomitant]
  7. DOCUSATE SODIUM [Concomitant]
  8. BUPROPION [Concomitant]
  9. LORAZEPAM [Concomitant]
  10. CODEINE [Concomitant]
  11. MULTI-VITAMINS [Concomitant]

REACTIONS (7)
  - ABNORMAL DREAMS [None]
  - DIARRHOEA [None]
  - DISTURBANCE IN ATTENTION [None]
  - HEADACHE [None]
  - INSOMNIA [None]
  - MALAISE [None]
  - NIGHTMARE [None]
